FAERS Safety Report 23753256 (Version 1)
Quarter: 2024Q2

REPORT INFORMATION
  Report Type: Spontaneous
  Country: US (occurrence: None)
  Receive Date: 20240417
  Receipt Date: 20240417
  Transmission Date: 20240716
  Serious: No
  Sender: FDA-Public Use
  Company Number: None

PATIENT
  Age: 49 Year
  Sex: Female
  Weight: 76.05 kg

DRUGS (14)
  1. DAXXIFY [Suspect]
     Active Substance: DAXIBOTULINUMTOXIN A-LANM
     Indication: Skin wrinkling
  2. OMEPRAZOLE [Concomitant]
     Active Substance: OMEPRAZOLE
  3. VYVANSE [Concomitant]
     Active Substance: LISDEXAMFETAMINE DIMESYLATE
  4. PRISTIQ EXTENDED-RELEASE [Concomitant]
     Active Substance: DESVENLAFAXINE SUCCINATE
  5. ALBUTEROL [Concomitant]
     Active Substance: ALBUTEROL
  6. FLOVENT [Concomitant]
     Active Substance: FLUTICASONE PROPIONATE
  7. CLONAZEPAM [Concomitant]
     Active Substance: CLONAZEPAM
  8. CLOBETASOL PROPIONATE [Concomitant]
     Active Substance: CLOBETASOL PROPIONATE
  9. ZYRTEC [Concomitant]
     Active Substance: CETIRIZINE HYDROCHLORIDE
  10. FLONASE [Concomitant]
     Active Substance: FLUTICASONE PROPIONATE
  11. VITAMINS [Concomitant]
     Active Substance: VITAMINS
  12. VITAMIN D3 [Concomitant]
     Active Substance: CHOLECALCIFEROL
  13. VITAMIN C [Concomitant]
     Active Substance: ASCORBIC ACID
  14. CALCIUM CITRATE [Concomitant]
     Active Substance: CALCIUM CITRATE

REACTIONS (7)
  - Fatigue [None]
  - Influenza like illness [None]
  - Headache [None]
  - Tenderness [None]
  - Paranasal sinus discomfort [None]
  - Palatal disorder [None]
  - Facial paralysis [None]

NARRATIVE: CASE EVENT DATE: 20240112
